FAERS Safety Report 5828655-5 (Version None)
Quarter: 2008Q3

REPORT INFORMATION
  Report Type: 
  Country: None (occurrence: None)
  Receive Date: 20080731
  Receipt Date: 20080724
  Transmission Date: 20090109
  Serious: Yes (Other)
  Sender: FDA-Public Use
  Company Number: B0530374A

PATIENT
  Age: 63 Year
  Sex: Male

DRUGS (1)
  1. AUGMENTIN '125' [Suspect]
     Route: 048
     Dates: start: 20080216

REACTIONS (6)
  - CHROMATURIA [None]
  - FAECES PALE [None]
  - FATIGUE [None]
  - LIVER INJURY [None]
  - OCULAR ICTERUS [None]
  - YELLOW SKIN [None]
